FAERS Safety Report 10573264 (Version 2)
Quarter: 2014Q4

REPORT INFORMATION
  Report Type: Spontaneous
  Country: BR (occurrence: BR)
  Receive Date: 20141110
  Receipt Date: 20141125
  Transmission Date: 20150529
  Serious: Yes (Other)
  Sender: FDA-Public Use
  Company Number: BR-SA-2014SA151618

PATIENT
  Sex: Female

DRUGS (4)
  1. LANTUS SOLOSTAR [Suspect]
     Active Substance: INSULIN GLARGINE
     Route: 065
  2. LANTUS SOLOSTAR [Suspect]
     Active Substance: INSULIN GLARGINE
     Route: 065
  3. ANTI-DIABETICS [Suspect]
     Active Substance: UNSPECIFIED INGREDIENT
     Route: 048
  4. SOLOSTAR [Concomitant]
     Active Substance: DEVICE

REACTIONS (7)
  - Irritability [Not Recovered/Not Resolved]
  - Medical diet [Not Recovered/Not Resolved]
  - Dementia Alzheimer^s type [Not Recovered/Not Resolved]
  - Mastication disorder [Not Recovered/Not Resolved]
  - General physical health deterioration [Not Recovered/Not Resolved]
  - Confusional state [Not Recovered/Not Resolved]
  - Bedridden [Not Recovered/Not Resolved]
